FAERS Safety Report 20567292 (Version 1)
Quarter: 2022Q1

REPORT INFORMATION
  Report Type: Spontaneous
  Country: US (occurrence: None)
  Receive Date: 20220308
  Receipt Date: 20220308
  Transmission Date: 20220423
  Serious: Yes (Other)
  Sender: FDA-Public Use
  Company Number: 2022A093026

PATIENT
  Age: 24749 Day
  Sex: Male

DRUGS (4)
  1. CRESTOR [Suspect]
     Active Substance: ROSUVASTATIN CALCIUM
     Indication: Lipids abnormal
     Route: 048
     Dates: start: 2009
  2. CRESTOR [Suspect]
     Active Substance: ROSUVASTATIN CALCIUM
     Indication: Lipids abnormal
     Route: 048
  3. AMLODIPINE [Concomitant]
     Active Substance: AMLODIPINE BESYLATE
  4. LEVETIRACETAN [Concomitant]

REACTIONS (5)
  - Haemorrhagic stroke [Recovering/Resolving]
  - Seizure [Recovered/Resolved]
  - Cerebral amyloid angiopathy [Unknown]
  - High density lipoprotein decreased [Unknown]
  - Blood pressure increased [Unknown]

NARRATIVE: CASE EVENT DATE: 20101020
